FAERS Safety Report 9415011 (Version 1)
Quarter: 2013Q3

REPORT INFORMATION
  Report Type: Report from Study
  Country: CA (occurrence: CA)
  Receive Date: 20130723
  Receipt Date: 20130723
  Transmission Date: 20140515
  Serious: Yes (Other)
  Sender: FDA-Public Use
  Company Number: PHHY2011CA42724

PATIENT
  Age: 61 Year
  Sex: Female

DRUGS (7)
  1. ACLASTA [Suspect]
     Indication: OSTEOPOROSIS
     Dosage: 5 MG,/ 100 ML
     Route: 042
     Dates: start: 20090506
  2. ACLASTA [Suspect]
     Dosage: 5 MG, / 100 ML
     Route: 042
     Dates: start: 20100513
  3. ACLASTA [Suspect]
     Dosage: 5 MG,/ 100 ML
     Route: 042
     Dates: start: 20110513
  4. ACLASTA [Suspect]
     Dosage: 5 MG, / 100 ML
     Route: 042
     Dates: start: 20120528
  5. ACLASTA [Suspect]
     Dosage: 5 MG, / 100 ML
     Route: 042
     Dates: start: 20130529
  6. ESTRIOL [Concomitant]
     Dosage: UNK
  7. ESTRACE [Concomitant]
     Indication: MENOPAUSE
     Dosage: 1 MG, DAILY

REACTIONS (5)
  - Blood pressure decreased [Recovered/Resolved]
  - Syncope [Unknown]
  - Loss of consciousness [Recovered/Resolved]
  - Infusion site discomfort [Unknown]
  - Hyperhidrosis [Unknown]
